FAERS Safety Report 5456495-8 (Version None)
Quarter: 2007Q3

REPORT INFORMATION
  Report Type: 
  Country: None (occurrence: None)
  Receive Date: 20070918
  Receipt Date: 20070430
  Transmission Date: 20080115
  Serious: Yes (Other)
  Sender: FDA-Public Use
  Company Number: US-ASTRAZENECA-2006UW25234

PATIENT
  Age: 417 Month
  Sex: Male
  Weight: 88.6 kg

DRUGS (8)
  1. SEROQUEL [Suspect]
     Indication: SCHIZOPHRENIA
     Route: 048
  2. SEROQUEL [Suspect]
     Indication: BIPOLAR DISORDER
     Route: 048
  3. SEROQUEL [Suspect]
     Indication: DEPRESSION
     Route: 048
  4. ABILIFY [Concomitant]
     Dates: start: 20030101
  5. GEODON [Concomitant]
     Route: 048
     Dates: start: 20040101
  6. RISPERDAL [Concomitant]
     Route: 048
     Dates: start: 20050101
  7. ZYPREXA [Concomitant]
     Route: 048
     Dates: start: 20030101
  8. LEXAPRO [Concomitant]
     Route: 048
     Dates: start: 20050101

REACTIONS (2)
  - DIABETES MELLITUS [None]
  - PANCREATITIS [None]
